FAERS Safety Report 4746101-X (Version None)
Quarter: 2005Q3

REPORT INFORMATION
  Report Type: 
  Country: None (occurrence: None)
  Receive Date: 20050816
  Receipt Date: 20050805
  Transmission Date: 20060218
  Serious: Yes (Other)
  Sender: FDA-Public Use
  Company Number: PHEH2005US08749

PATIENT
  Age: 72 Year
  Sex: Female

DRUGS (10)
  1. CARBOPLATIN [Concomitant]
     Dosage: UNK Q3WK
     Dates: start: 20030821
  2. GEMZAR [Concomitant]
     Dosage: Q3WK
     Dates: start: 20030821
  3. DECADRON /NET/ [Concomitant]
     Dates: start: 20030123
  4. DOXIL [Concomitant]
     Dosage: UNK Q4WK
     Dates: start: 20040526
  5. XELODA [Concomitant]
     Dosage: QD FOR 2 WEEKS
     Dates: start: 20041201, end: 20050501
  6. ABRAXENE [Concomitant]
     Dates: start: 20050603
  7. TAXOTERE [Concomitant]
     Dates: start: 20030123, end: 20030625
  8. NAVELBINE [Concomitant]
     Dates: start: 20030413, end: 20030417
  9. TAXOL [Concomitant]
     Dates: start: 20030508
  10. ZOMETA [Suspect]
     Indication: BREAST CANCER METASTATIC
     Dosage: 4MG QMO
     Route: 042
     Dates: start: 20030318, end: 20050708

REACTIONS (2)
  - ASEPTIC NECROSIS BONE [None]
  - PAIN IN JAW [None]
